FAERS Safety Report 19588980 (Version 2)
Quarter: 2021Q4

REPORT INFORMATION
  Report Type: Spontaneous
  Country: US (occurrence: US)
  Receive Date: 20210721
  Receipt Date: 20211019
  Transmission Date: 20220303
  Serious: Yes (Other)
  Sender: FDA-Public Use
  Company Number: US-PFIZER INC-2021853286

PATIENT
  Age: 67 Year
  Sex: Female
  Weight: 112.94 kg

DRUGS (2)
  1. AROMASIN [Suspect]
     Active Substance: EXEMESTANE
     Indication: Bone cancer
     Dosage: 25 MG, 1X/DAY
     Route: 048
  2. AFINITOR [Concomitant]
     Active Substance: EVEROLIMUS
     Indication: Bone cancer
     Dosage: 5 MG, 1X/DAY

REACTIONS (3)
  - Lower respiratory tract infection [Unknown]
  - Vertigo [Unknown]
  - Dizziness [Not Recovered/Not Resolved]

NARRATIVE: CASE EVENT DATE: 20211005
